FAERS Safety Report 10666574 (Version 1)
Quarter: 2014Q4

REPORT INFORMATION
  Report Type: Spontaneous
  Country: TW (occurrence: TW)
  Receive Date: 20141221
  Receipt Date: 20141221
  Transmission Date: 20150529
  Serious: Yes (Other)
  Sender: FDA-Public Use
  Company Number: TW-AMGEN-TWNSP2014098526

PATIENT
  Age: 65 Year
  Sex: Female

DRUGS (1)
  1. ENBREL [Suspect]
     Active Substance: ETANERCEPT
     Indication: RHEUMATOID ARTHRITIS
     Dosage: 25 MG, 16 DOSE PER 3 MONTH
     Route: 058
     Dates: start: 200607

REACTIONS (2)
  - Fall [Unknown]
  - Foot fracture [Recovering/Resolving]

NARRATIVE: CASE EVENT DATE: 20141208
